FAERS Safety Report 9273460 (Version 1)
Quarter: 2013Q2

REPORT INFORMATION
  Report Type: Spontaneous
  Country: US (occurrence: US)
  Receive Date: 20130506
  Receipt Date: 20130506
  Transmission Date: 20140414
  Serious: No
  Sender: FDA-Public Use
  Company Number: US-AMGEN-USASP2013028074

PATIENT
  Age: 28 Year
  Sex: Male

DRUGS (2)
  1. ENBREL [Suspect]
     Indication: ANKYLOSING SPONDYLITIS
     Dosage: 50 MG, QWK
     Dates: start: 20130225
  2. METHOTREXATE [Concomitant]
     Dosage: 1 ML, 6-7 MONTHS, 1 ML INJECTION ONCE A WEEK SQ
     Route: 058

REACTIONS (1)
  - Skin disorder [Not Recovered/Not Resolved]
